FAERS Safety Report 20621367 (Version 1)
Quarter: 2022Q1

REPORT INFORMATION
  Report Type: Spontaneous
  Country: CA (occurrence: CA)
  Receive Date: 20220322
  Receipt Date: 20220322
  Transmission Date: 20220423
  Serious: Yes (Hospitalization, Other)
  Sender: FDA-Public Use
  Company Number: CA-PFIZER INC-202200390916

PATIENT
  Age: 42 Year
  Sex: Male

DRUGS (2)
  1. DALTEPARIN SODIUM [Suspect]
     Active Substance: DALTEPARIN SODIUM
     Dosage: 225000 IU (15 PREFILLED 15000-UNIT VIALS)
  2. RIVAROXABAN [Concomitant]
     Active Substance: RIVAROXABAN
     Indication: Thrombosis
     Dosage: 20 MG, DAILY

REACTIONS (3)
  - Intentional overdose [Recovering/Resolving]
  - Compartment syndrome [Recovering/Resolving]
  - Injection site haematoma [Recovering/Resolving]
